FAERS Safety Report 7874997-1 (Version None)
Quarter: 2011Q4

REPORT INFORMATION
  Report Type: 
  Country: None (occurrence: None)
  Receive Date: 20111031
  Receipt Date: 20100602
  Transmission Date: 20120403
  Serious: No
  Sender: FDA-Public Use
  Company Number: US-BAYER-201024759NA

PATIENT
  Age: 65 Year
  Sex: Male

DRUGS (4)
  1. HYDROCHLOROTHIAZIDE [Concomitant]
     Dosage: UNK
  2. LEVITRA [Suspect]
     Indication: ERECTILE DYSFUNCTION
     Dosage: 5-20 MG AS NEEDED
     Route: 048
     Dates: start: 20100401
  3. LAMICTAL [Concomitant]
     Dosage: UNK
  4. LISINOPRIL [Concomitant]

REACTIONS (1)
  - DYSPNOEA [None]
